FAERS Safety Report 5268189-2 (Version None)
Quarter: 2007Q1

REPORT INFORMATION
  Report Type: 
  Country: None (occurrence: None)
  Receive Date: 20070314
  Receipt Date: 20070314
  Transmission Date: 20070707
  Serious: Yes (Other)
  Sender: FDA-Public Use
  Company Number: None

PATIENT
  Sex: Male
  Weight: 84.8 kg

DRUGS (11)
  1. CYTOXAN [Suspect]
     Indication: MANTLE CELL LYMPHOMA
     Dosage: STANDARD OF CARE Q 21 DAYS 6 CYLS IV + ORAL
     Route: 048
     Dates: start: 20070130, end: 20070224
  2. ADRIAMYCIN PFS [Suspect]
     Indication: MANTLE CELL LYMPHOMA
     Dosage: STANDARD OF CARE Q 21 DAYS 6 CYLS IV + ORAL
     Route: 042
     Dates: start: 20070130, end: 20070224
  3. ONCOVIN [Suspect]
     Indication: MANTLE CELL LYMPHOMA
     Dosage: STANDARD OF CARE Q 21 DAYS 6 CYLS IV + ORAL
     Route: 048
     Dates: start: 20070130, end: 20070224
  4. PREDNISONE [Suspect]
     Indication: MANTLE CELL LYMPHOMA
     Dosage: STANDARD OF CARE Q 21 DAYS 6 CYLS IV + ORAL
     Route: 042
     Dates: start: 20070130, end: 20070224
  5. RITUXIMAB [Suspect]
     Indication: MANTLE CELL LYMPHOMA
     Dosage: STANDARD OF CARE Q 21 DAYS 6 CYLS IV + ORAL
     Route: 048
     Dates: start: 20070130, end: 20070223
  6. VELCADE [Suspect]
     Indication: MANTLE CELL LYMPHOMA
     Dosage: 1.3 MG/M2 DAYS 1+4 Q CYL. IV
     Route: 042
     Dates: start: 20070130, end: 20070223
  7. ATIVAN [Concomitant]
  8. COMPAZINE [Concomitant]
  9. MIRACLE MOUTHWASH [Concomitant]
  10. PREDNISONE [Concomitant]
  11. ZOFRAN [Concomitant]

REACTIONS (3)
  - CARDIOTOXICITY [None]
  - DRUG TOXICITY [None]
  - VENTRICULAR DYSFUNCTION [None]
